FAERS Safety Report 5975748-8 (Version None)
Quarter: 2008Q4

REPORT INFORMATION
  Report Type: 
  Country: None (occurrence: None)
  Receive Date: 20081202
  Receipt Date: 20081127
  Transmission Date: 20090506
  Serious: Yes (Hospitalization)
  Sender: FDA-Public Use
  Company Number: IE-MERCK-0811GBR00101

PATIENT
  Age: 60 Year
  Sex: Male

DRUGS (4)
  1. JANUVIA [Suspect]
     Route: 048
     Dates: start: 20080701
  2. METFORMIN [Concomitant]
     Route: 065
  3. ROSUVASTATIN CALCIUM [Concomitant]
     Route: 065
  4. GLICLAZIDE [Concomitant]
     Route: 065

REACTIONS (1)
  - LIVER FUNCTION TEST ABNORMAL [None]
